FAERS Safety Report 4833167-1 (Version None)
Quarter: 2005Q4

REPORT INFORMATION
  Report Type: 
  Country: None (occurrence: None)
  Receive Date: 20051117
  Receipt Date: 20051108
  Transmission Date: 20060501
  Serious: Yes (Hospitalization)
  Sender: FDA-Public Use
  Company Number: FR_051107436

PATIENT
  Age: 75 Year
  Sex: Female

DRUGS (6)
  1. FORTEO [Suspect]
     Indication: OSTEOPOROSIS
     Dosage: 20 UG DAY
     Dates: start: 20050706, end: 20051001
  2. CRESTOR [Concomitant]
  3. LORAZEPAM [Concomitant]
  4. LEXOMIL (BROMAZEPAM) [Concomitant]
  5. ASPEGIC 325 [Concomitant]
  6. DI-ANTALVIC [Concomitant]

REACTIONS (2)
  - HEPATOCELLULAR DAMAGE [None]
  - MALAISE [None]
